FAERS Safety Report 22395593 (Version 1)
Quarter: 2023Q2

REPORT INFORMATION
  Report Type: Spontaneous
  Country: DE (occurrence: DE)
  Receive Date: 20230601
  Receipt Date: 20230601
  Transmission Date: 20230722
  Serious: Yes (Other)
  Sender: FDA-Public Use
  Company Number: DE-BAXTER-2023BAX021823

PATIENT

DRUGS (18)
  1. DEXAMETHASONE [Suspect]
     Active Substance: DEXAMETHASONE
     Indication: Plasma cell myeloma refractory
     Dosage: SECOND LINE CHEMOTHERAPY
     Route: 065
     Dates: start: 20160915, end: 20170201
  2. DEXAMETHASONE [Suspect]
     Active Substance: DEXAMETHASONE
     Dosage: FOURTH LINE CHEMOTHERAPY
     Route: 065
     Dates: start: 20180415, end: 20200501
  3. DEXAMETHASONE [Suspect]
     Active Substance: DEXAMETHASONE
     Dosage: FIRST LINE INDUCTION CHEMOTHERAPY
     Route: 065
     Dates: start: 20150401, end: 20160901
  4. DEXAMETHASONE [Suspect]
     Active Substance: DEXAMETHASONE
     Dosage: MOST RECENT LINE TREATMENT
     Route: 065
     Dates: start: 20220901, end: 20230330
  5. DEXAMETHASONE [Suspect]
     Active Substance: DEXAMETHASONE
     Dosage: FIFTH LINE CHEMOTHERAPY
     Route: 065
     Dates: start: 20200601, end: 20201201
  6. DEXAMETHASONE [Suspect]
     Active Substance: DEXAMETHASONE
     Dosage: THIRD LINE CHEMOTHERAPY
     Route: 065
     Dates: start: 20180101, end: 20180401
  7. PANOBINOSTAT [Suspect]
     Active Substance: PANOBINOSTAT
     Indication: Plasma cell myeloma refractory
     Dosage: SIXTH LINE CHEMOTHERAPY
     Route: 065
     Dates: start: 20201210, end: 20210130
  8. POMALIDOMIDE [Suspect]
     Active Substance: POMALIDOMIDE
     Indication: Plasma cell myeloma refractory
     Dosage: FIFTH LINE CHEMOTHERAPY
     Route: 065
     Dates: start: 20200601, end: 20201201
  9. CYCLOPHOSPHAMIDE [Suspect]
     Active Substance: CYCLOPHOSPHAMIDE
     Indication: Plasma cell myeloma refractory
     Dosage: FIRST LINE INDUCTION CHEMOTHERAPY
     Route: 065
     Dates: start: 20150401, end: 20160901
  10. CYCLOPHOSPHAMIDE [Suspect]
     Active Substance: CYCLOPHOSPHAMIDE
     Dosage: FIFTH LINE CHEMOTHERAPY
     Route: 065
     Dates: start: 20200601, end: 20201201
  11. ELOTUZUMAB [Suspect]
     Active Substance: ELOTUZUMAB
     Indication: Plasma cell myeloma refractory
     Dosage: MOST RECENT LINE OF TREATMENT
     Route: 065
     Dates: start: 20220901, end: 20230330
  12. CARFILZOMIB [Suspect]
     Active Substance: CARFILZOMIB
     Indication: Plasma cell myeloma refractory
     Dosage: SECOND LINE INDUCTION CHEMOTHERAPY
     Route: 065
     Dates: start: 20160915, end: 20170201
  13. LENALIDOMIDE [Suspect]
     Active Substance: LENALIDOMIDE
     Indication: Plasma cell myeloma refractory
     Dosage: THIRD LINE CHEMOTHERAPY
     Route: 065
     Dates: start: 20180101, end: 20180401
  14. LENALIDOMIDE [Suspect]
     Active Substance: LENALIDOMIDE
     Dosage: MOST RECENT LINE TREATMENT
     Route: 065
     Dates: start: 20220901, end: 20230330
  15. DOXORUBICIN HYDROCHLORIDE [Suspect]
     Active Substance: DOXORUBICIN HYDROCHLORIDE
     Indication: Plasma cell myeloma refractory
     Dosage: OTHER TREATMENT REGIMEN, CAELYX PEGYLATED LIPOSOMAL 2 MG/ML CONCENTRATE FOR SOLUTION FOR INFUSION
     Route: 065
  16. BORTEZOMIB [Suspect]
     Active Substance: BORTEZOMIB
     Indication: Plasma cell myeloma refractory
     Dosage: FIRST LINE INDUCTION CHEMOTHERAPY
     Route: 065
     Dates: start: 20150401, end: 20160901
  17. DARATUMUMAB [Suspect]
     Active Substance: DARATUMUMAB
     Indication: Plasma cell myeloma refractory
     Dosage: FOURTH LINE CHEMOTHERAPY
     Route: 065
     Dates: start: 20180415, end: 20200501
  18. MELPHALAN [Suspect]
     Active Substance: MELPHALAN
     Indication: Plasma cell myeloma refractory
     Dosage: FIRST LINE INDUCTION CHEMOTHERAPY, HIGH DOSE MELPHALAN
     Route: 065
     Dates: start: 20150401, end: 20160901

REACTIONS (1)
  - Plasma cell myeloma [Unknown]
